FAERS Safety Report 16737001 (Version 5)
Quarter: 2020Q2

REPORT INFORMATION
  Report Type: Spontaneous
  Country: US (occurrence: US)
  Receive Date: 20190823
  Receipt Date: 20200528
  Transmission Date: 20200713
  Serious: Yes (Hospitalization)
  Sender: FDA-Public Use
  Company Number: US-ACTELION-A-US2019-194463

PATIENT
  Sex: Male
  Weight: 92.52 kg

DRUGS (7)
  1. UPTRAVI [Suspect]
     Active Substance: SELEXIPAG
     Indication: PULMONARY ARTERIAL HYPERTENSION
     Dosage: 1000 MCG, BID
     Route: 048
     Dates: start: 201908
  2. UPTRAVI [Suspect]
     Active Substance: SELEXIPAG
     Dosage: 800 MCG, QPM
     Route: 048
  3. UPTRAVI [Suspect]
     Active Substance: SELEXIPAG
     Dosage: 200 MCG, BID
     Route: 048
  4. UPTRAVI [Suspect]
     Active Substance: SELEXIPAG
     Dosage: 400 MCG, BID
     Route: 048
     Dates: start: 201908
  5. UPTRAVI [Suspect]
     Active Substance: SELEXIPAG
     Dosage: 1200 MCG, BID
     Route: 048
  6. UPTRAVI [Suspect]
     Active Substance: SELEXIPAG
     Dosage: 600 MCG, QPM
     Route: 048
     Dates: start: 20190928
  7. SILDENAFIL CITRATE. [Concomitant]
     Active Substance: SILDENAFIL CITRATE

REACTIONS (23)
  - Headache [Unknown]
  - Gait disturbance [Recovered/Resolved]
  - Blood pressure decreased [Unknown]
  - Pain [Unknown]
  - Weight increased [Unknown]
  - Pruritus [Unknown]
  - Rash papular [Not Recovered/Not Resolved]
  - Subdural haematoma [Recovered/Resolved]
  - Haematoma evacuation [Recovering/Resolving]
  - Wheezing [Unknown]
  - Decreased appetite [Unknown]
  - Dysarthria [Recovered/Resolved]
  - Oedema [Unknown]
  - Abdominal pain upper [Unknown]
  - Fall [Recovered/Resolved]
  - Chills [Unknown]
  - Pain in jaw [Unknown]
  - Asthenia [Unknown]
  - Fatigue [Unknown]
  - Malaise [Unknown]
  - Dyspnoea exertional [Recovering/Resolving]
  - Sensory processing disorder [Recovered/Resolved]
  - Erythema [Unknown]
